FAERS Safety Report 6232355-X (Version None)
Quarter: 2009Q2

REPORT INFORMATION
  Report Type: 
  Country: None (occurrence: None)
  Receive Date: 20090617
  Receipt Date: 20090612
  Transmission Date: 20091009
  Serious: Yes (Hospitalization)
  Sender: FDA-Public Use
  Company Number: KR-JNJFOC-20090600699

PATIENT
  Age: 7 Year
  Sex: Female
  Weight: 24 kg

DRUGS (3)
  1. CONCERTA [Suspect]
     Route: 048
  2. CONCERTA [Suspect]
     Indication: ATTENTION DEFICIT/HYPERACTIVITY DISORDER
     Route: 048
  3. SERTRALINE [Concomitant]
     Indication: SELECTIVE MUTISM
     Route: 048

REACTIONS (1)
  - COMPULSIONS [None]
